FAERS Safety Report 8823843 (Version 3)
Quarter: 2013Q4

REPORT INFORMATION
  Report Type: Spontaneous
  Country: US (occurrence: US)
  Receive Date: 20121003
  Receipt Date: 20131031
  Transmission Date: 20140711
  Serious: Yes (Hospitalization, Other)
  Sender: FDA-Public Use
  Company Number: US-009507513-1210USA001324

PATIENT
  Sex: Female

DRUGS (2)
  1. MIRALAX [Suspect]
     Indication: PRODUCT USED FOR UNKNOWN INDICATION
     Dosage: UNK, UNKNOWN
     Route: 048
  2. GASTROINTESTINAL PREPARATIONS (UNSPECIFIED) [Concomitant]
     Indication: CONSTIPATION
     Dosage: UNK, PRN
     Route: 048

REACTIONS (5)
  - Surgery [Unknown]
  - Drug ineffective [Unknown]
  - Expired drug administered [Unknown]
  - Pain [Unknown]
  - Obstruction [Unknown]
